FAERS Safety Report 8161060-8 (Version None)
Quarter: 2012Q1

REPORT INFORMATION
  Report Type: 
  Country: None (occurrence: None)
  Receive Date: 20120224
  Receipt Date: 20120213
  Transmission Date: 20120608
  Serious: Yes (Hospitalization)
  Sender: FDA-Public Use
  Company Number: JP-BRISTOL-MYERS SQUIBB COMPANY-16400830

PATIENT
  Age: 70 Year
  Sex: Male

DRUGS (3)
  1. GLUFAST [Concomitant]
  2. METFORMIN HCL [Suspect]
     Indication: DIABETES MELLITUS
     Dosage: STARTED AT 1000MG(60 DAYS)
     Route: 048
  3. BASEN [Concomitant]

REACTIONS (1)
  - HEPATIC FUNCTION ABNORMAL [None]
